FAERS Safety Report 6401283-9 (Version None)
Quarter: 2009Q4

REPORT INFORMATION
  Report Type: 
  Country: None (occurrence: None)
  Receive Date: 20091009
  Receipt Date: 20091009
  Transmission Date: 20100525
  Serious: No
  Sender: FDA-Public Use
  Company Number: None

PATIENT
  Age: 42 Year
  Sex: Female
  Weight: 77.1115 kg

DRUGS (1)
  1. RELPAX [Suspect]
     Indication: MIGRAINE
     Dosage: 40MG PRN PO
     Route: 048
     Dates: start: 20091006, end: 20091006

REACTIONS (4)
  - CHEST DISCOMFORT [None]
  - EAR PAIN [None]
  - NECK PAIN [None]
  - OROPHARYNGEAL PAIN [None]
